FAERS Safety Report 8042739-5 (Version None)
Quarter: 2012Q1

REPORT INFORMATION
  Report Type: 
  Country: None (occurrence: None)
  Receive Date: 20120112
  Receipt Date: 20120109
  Transmission Date: 20120608
  Serious: Yes (Hospitalization, Other)
  Sender: FDA-Public Use
  Company Number: US-CELGENEUS-163-21880-11121769

PATIENT
  Sex: Female
  Weight: 64.922 kg

DRUGS (16)
  1. ASPIRIN [Concomitant]
     Route: 065
  2. XALATAN [Concomitant]
     Route: 065
  3. FOLIC ACID [Concomitant]
     Route: 065
  4. LIPITOR [Concomitant]
     Route: 065
  5. REVLIMID [Suspect]
     Dosage: 5 MILLIGRAM
     Route: 048
     Dates: start: 20100428
  6. BUMETANIDE [Concomitant]
     Route: 065
  7. CENTRUM [Concomitant]
     Route: 065
  8. DIALYVITE [Concomitant]
     Route: 065
  9. HYDRALAZINE HCL [Concomitant]
     Route: 065
  10. LEVOTHYROXINE SODIUM [Concomitant]
     Route: 065
  11. PEPCID [Concomitant]
     Route: 065
  12. ALBUTEROL [Concomitant]
     Route: 065
  13. MAGNESIUM [Concomitant]
     Route: 065
  14. OMEPRAZOLE [Concomitant]
     Route: 065
  15. OSCAL [Concomitant]
     Route: 065
  16. NEVANAC [Concomitant]
     Route: 065

REACTIONS (2)
  - MUSCULOSKELETAL DISORDER [None]
  - HAEMORRHAGE [None]
